FAERS Safety Report 15806593 (Version 3)
Quarter: 2019Q1

REPORT INFORMATION
  Report Type: Spontaneous
  Country: US (occurrence: US)
  Receive Date: 20190110
  Receipt Date: 20190205
  Transmission Date: 20190417
  Serious: No
  Sender: FDA-Public Use
  Company Number: US-UNITED THERAPEUTICS-UNT-2019-000288

PATIENT
  Sex: Female
  Weight: 83.45 kg

DRUGS (2)
  1. OPSUMIT [Suspect]
     Active Substance: MACITENTAN
     Indication: PRODUCT USED FOR UNKNOWN INDICATION
     Dosage: UNK
     Route: 065
  2. ORENITRAM [Suspect]
     Active Substance: TREPROSTINIL
     Indication: PULMONARY ARTERIAL HYPERTENSION
     Dosage: 2.5 MG, TID
     Route: 048
     Dates: start: 20180711

REACTIONS (10)
  - Nausea [Unknown]
  - Dyspnoea exertional [Not Recovered/Not Resolved]
  - Tremor [Unknown]
  - Pain in extremity [Unknown]
  - Decreased appetite [Unknown]
  - Diarrhoea [Unknown]
  - Bronchitis [Unknown]
  - Chest pain [Unknown]
  - Dyspnoea at rest [Not Recovered/Not Resolved]
  - Palpitations [Unknown]
